FAERS Safety Report 4813981-9 (Version None)
Quarter: 2005Q4

REPORT INFORMATION
  Report Type: 
  Country: None (occurrence: None)
  Receive Date: 20051028
  Receipt Date: 20041220
  Transmission Date: 20060501
  Serious: No
  Sender: FDA-Public Use
  Company Number: US-GLAXOSMITHKLINE-A0538030A

PATIENT
  Age: 73 Year
  Sex: Male

DRUGS (3)
  1. SEREVENT [Suspect]
     Indication: ASTHMA
     Dosage: 1PUFF TWICE PER DAY
     Dates: start: 20041212
  2. AZMACORT [Concomitant]
  3. ALBUTEROL [Concomitant]

REACTIONS (1)
  - MUSCLE SPASMS [None]
